FAERS Safety Report 8020244-X (Version None)
Quarter: 2012Q1

REPORT INFORMATION
  Report Type: 
  Country: None (occurrence: None)
  Receive Date: 20120103
  Receipt Date: 20111219
  Transmission Date: 20120608
  Serious: Yes (Hospitalization)
  Sender: FDA-Public Use
  Company Number: US-ARROW GEN-2011-22326

PATIENT
  Age: 23 Year
  Sex: Female

DRUGS (1)
  1. OMEPRAZOLE [Suspect]
     Indication: GASTROOESOPHAGEAL REFLUX DISEASE
     Dosage: UNK
     Route: 065

REACTIONS (7)
  - VOMITING [None]
  - ABDOMINAL PAIN LOWER [None]
  - CHILLS [None]
  - LEUKOCYTOSIS [None]
  - GASTRIC INFECTION [None]
  - PYREXIA [None]
  - TACHYCARDIA [None]
